FAERS Safety Report 10135727 (Version 1)
Quarter: 2014Q2

REPORT INFORMATION
  Report Type: Spontaneous
  Country: US (occurrence: US)
  Receive Date: 20140428
  Receipt Date: 20140428
  Transmission Date: 20141212
  Serious: No
  Sender: FDA-Public Use
  Company Number: US-009507513-1404USA006429

PATIENT
  Age: 50 Year
  Sex: Female

DRUGS (2)
  1. AFRIN [Suspect]
     Indication: HYPERSENSITIVITY
     Dosage: 2 SPRAYS EVERY 4-6 HRS
     Route: 045
     Dates: start: 2014
  2. BENADRYL [Concomitant]

REACTIONS (4)
  - Drug ineffective [Not Recovered/Not Resolved]
  - Overdose [Unknown]
  - Inappropriate schedule of drug administration [Unknown]
  - Product quality issue [Unknown]
